FAERS Safety Report 5343969-3 (Version None)
Quarter: 2007Q2

REPORT INFORMATION
  Report Type: 
  Country: None (occurrence: None)
  Receive Date: 20070604
  Receipt Date: 20070525
  Transmission Date: 20071010
  Serious: Yes (Other)
  Sender: FDA-Public Use
  Company Number: US-GENENTECH-233266

PATIENT
  Age: 4 Year
  Sex: Female

DRUGS (3)
  1. RITUXIMAB [Suspect]
     Indication: OPSOCLONUS MYOCLONUS
     Dosage: 375 MG/M2, 1/WEEK
  2. IMMUNE GLOBULIN INTRAVENOUS (HUMAN) [Concomitant]
     Indication: OPSOCLONUS MYOCLONUS
     Route: 042
  3. CORTICOTROPIN [Concomitant]
     Indication: OPSOCLONUS MYOCLONUS
     Route: 042

REACTIONS (1)
  - NEUROBLASTOMA [None]
